FAERS Safety Report 25335747 (Version 1)
Quarter: 2025Q2

REPORT INFORMATION
  Report Type: Spontaneous
  Country: CN (occurrence: CN)
  Receive Date: 20250520
  Receipt Date: 20250520
  Transmission Date: 20250717
  Serious: Yes (Other)
  Sender: PFIZER
  Company Number: CN-PFIZER INC-PV202500058149

PATIENT
  Age: 10 Year
  Sex: Male
  Weight: 41 kg

DRUGS (2)
  1. METHOTREXATE SODIUM [Suspect]
     Active Substance: METHOTREXATE SODIUM
     Indication: Leukaemia
     Dosage: 12.5 MG, 1X/DAY
     Route: 037
     Dates: start: 20250414, end: 20250414
  2. VENETOCLAX [Suspect]
     Active Substance: VENETOCLAX
     Indication: Leukaemia
     Dosage: 100 MG, 1X/DAY
     Route: 048
     Dates: start: 20250415, end: 20250415

REACTIONS (6)
  - CSF white blood cell count increased [Unknown]
  - CSF glucose increased [Unknown]
  - CSF red blood cell count positive [Unknown]
  - Pyrexia [Unknown]
  - Vomiting [Recovering/Resolving]
  - Diarrhoea [Recovering/Resolving]

NARRATIVE: CASE EVENT DATE: 20250510
